FAERS Safety Report 21042153 (Version 6)
Quarter: 2023Q4

REPORT INFORMATION
  Report Type: Spontaneous
  Country: FR (occurrence: FR)
  Receive Date: 20220705
  Receipt Date: 20231226
  Transmission Date: 20240110
  Serious: Yes (Life-Threatening, Hospitalization, Other)
  Sender: FDA-Public Use
  Company Number: FR-AFSSAPS-CF20180652

PATIENT
  Age: 18 Year
  Sex: Male
  Weight: 63 kg

DRUGS (2)
  1. TRAMADOL [Suspect]
     Active Substance: TRAMADOL\TRAMADOL HYDROCHLORIDE
     Indication: Cluster headache
     Dosage: 100 MILLIGRAM, DAILY
     Route: 048
     Dates: start: 2018
  2. TRAMADOL [Suspect]
     Active Substance: TRAMADOL\TRAMADOL HYDROCHLORIDE
     Dosage: 1 DOSAGE FORM, ONCE A DAY(1 DOSAGE FORM, QUANTITY NOT SPECIFIED)
     Route: 048
     Dates: start: 20210531, end: 20210531

REACTIONS (20)
  - Cardio-respiratory arrest [Recovered/Resolved]
  - Hepatic failure [Recovered/Resolved]
  - Pneumonia aspiration [Recovered/Resolved]
  - Lactic acidosis [Recovered/Resolved]
  - Multiple organ dysfunction syndrome [Recovered/Resolved]
  - Renal failure [Recovered/Resolved]
  - Rhabdomyolysis [Recovered/Resolved]
  - Thrombocytopenia [Recovered/Resolved]
  - Cell death [Recovered/Resolved]
  - Hypoglycaemia [Recovered/Resolved]
  - Overdose [Recovered/Resolved]
  - Toxicity to various agents [Recovered/Resolved]
  - Ventricular fibrillation [Recovered/Resolved]
  - Hyperinsulinaemia [Recovered/Resolved]
  - Hepatic cytolysis [Recovered/Resolved]
  - Mydriasis [Recovered/Resolved]
  - Treatment noncompliance [Recovered/Resolved]
  - Poisoning deliberate [Recovered/Resolved]
  - Prothrombin level decreased [Recovered/Resolved]
  - Intentional product misuse [Recovered/Resolved]

NARRATIVE: CASE EVENT DATE: 20180101
